FAERS Safety Report 6253510-9 (Version None)
Quarter: 2009Q3

REPORT INFORMATION
  Report Type: 
  Country: None (occurrence: None)
  Receive Date: 20090701
  Receipt Date: 20090701
  Transmission Date: 20100115
  Serious: Yes (Hospitalization)
  Sender: FDA-Public Use
  Company Number: US-MYLANLABS-2009S1010320

PATIENT
  Age: 71 Year
  Sex: Female
  Weight: 105.69 kg

DRUGS (23)
  1. FENTANYL TRANSDERMAL SYSTEM [Suspect]
     Indication: BACK PAIN
     Dosage: CHANGED PATCHES Q3D
     Route: 062
     Dates: start: 20061204, end: 20081101
  2. FENTANYL TRANSDERMAL SYSTEM [Suspect]
     Indication: ARTHRALGIA
     Dosage: CHANGED PATCHES Q3D
     Route: 062
     Dates: start: 20061204, end: 20081101
  3. FENTANYL TRANSDERMAL SYSTEM [Suspect]
     Indication: PAIN
     Dosage: CHANGED PATCHES Q3D
     Route: 062
     Dates: start: 20061204, end: 20081101
  4. FOLIC ACID [Concomitant]
     Route: 048
     Dates: start: 20080228
  5. AVAPRO [Concomitant]
     Indication: BLOOD PRESSURE INCREASED
     Route: 048
     Dates: start: 20000915
  6. LASIX [Concomitant]
     Indication: FLUID RETENTION
     Route: 048
     Dates: start: 20080111
  7. LOVASTATIN [Concomitant]
     Indication: BLOOD CHOLESTEROL INCREASED
     Route: 048
     Dates: start: 20060710
  8. VITAMIN D [Concomitant]
     Route: 042
     Dates: start: 20080228
  9. VITAMIN K [Concomitant]
     Route: 030
  10. DIFLUNISAL [Concomitant]
     Route: 048
  11. DIAZEPAM [Concomitant]
     Route: 048
     Dates: start: 20030304
  12. GLIPIZIDE [Concomitant]
     Route: 048
     Dates: start: 20000628
  13. MECLIZINE [Concomitant]
     Indication: DIZZINESS
     Route: 048
     Dates: start: 20061005
  14. LEVOTHYROXINE SODIUM [Concomitant]
     Route: 048
     Dates: start: 20000627
  15. ARICEPT [Concomitant]
     Indication: MEMORY IMPAIRMENT
     Route: 048
     Dates: start: 20060828
  16. GABAPENTIN [Concomitant]
     Route: 048
     Dates: start: 20070502
  17. SEROQUEL [Concomitant]
     Route: 048
     Dates: start: 20060712
  18. ZEMPLAR [Concomitant]
     Indication: RENAL DISORDER
     Dates: start: 20080610
  19. OMEPRAZOLE [Concomitant]
     Indication: ABDOMINAL DISCOMFORT
     Dates: start: 20060828
  20. OXYCODONE [Concomitant]
     Indication: PAIN
     Route: 048
     Dates: start: 20060727
  21. LIDODERM [Concomitant]
     Route: 062
     Dates: start: 20070625
  22. HYDROCHLOROTHIAZIDE [Concomitant]
  23. SIMVASTATIN [Concomitant]

REACTIONS (4)
  - DYSARTHRIA [None]
  - DYSPNOEA [None]
  - EYE DISORDER [None]
  - INAPPROPRIATE SCHEDULE OF DRUG ADMINISTRATION [None]
